FAERS Safety Report 23505889 (Version 2)
Quarter: 2024Q2

REPORT INFORMATION
  Report Type: Report from Study
  Country: US (occurrence: US)
  Receive Date: 20240209
  Receipt Date: 20240422
  Transmission Date: 20240716
  Serious: Yes (Hospitalization, Other)
  Sender: FDA-Public Use
  Company Number: US-ABBVIE-5623419

PATIENT
  Sex: Female
  Weight: 66.678 kg

DRUGS (22)
  1. HUMIRA [Suspect]
     Active Substance: ADALIMUMAB
     Indication: Rheumatoid arthritis
     Dosage: FORM STRENGTH: 40 MILLIGRAM,?START DATE TEXT: 10 TO 15 YEARS AGO
     Route: 058
     Dates: start: 2009, end: 202111
  2. HUMIRA [Suspect]
     Active Substance: ADALIMUMAB
     Dosage: FORM STRENGTH: 40 MILLIGRAM
     Route: 058
     Dates: start: 202307, end: 202308
  3. HUMIRA [Suspect]
     Active Substance: ADALIMUMAB
     Dosage: FORM STRENGTH: 40 MILLIGRAM
     Route: 058
     Dates: start: 202309
  4. HUMIRA [Suspect]
     Active Substance: ADALIMUMAB
     Dosage: FORM STRENGTH: 40 MILLIGRAM
     Route: 058
     Dates: start: 202112, end: 202306
  5. VITAMIN D [Concomitant]
     Active Substance: VITAMIN D NOS
     Indication: Vitamin D deficiency
     Dosage: 50,000 UNIT
  6. CARVEDILOL [Concomitant]
     Active Substance: CARVEDILOL
     Indication: Heart rate irregular
  7. METHENAMINE HIPPURATE [Concomitant]
     Active Substance: METHENAMINE HIPPURATE
     Indication: Prophylaxis urinary tract infection
  8. PROBIOTICS NOS [Concomitant]
     Active Substance: PROBIOTICS NOS
     Indication: Gastrointestinal disorder
     Dosage: PROBIOTICS
  9. PREDNISONE [Concomitant]
     Active Substance: PREDNISONE
     Indication: Addison^s disease
     Dosage: 5 MILLIGRAM
  10. TYLENOL [Concomitant]
     Active Substance: ACETAMINOPHEN
     Indication: Crohn^s disease
     Dosage: TIME INTERVAL: AS NECESSARY
  11. ISOSORBIDE MONONITRATE [Concomitant]
     Active Substance: ISOSORBIDE MONONITRATE
     Indication: Hypertension
  12. GABAPENTIN [Concomitant]
     Active Substance: GABAPENTIN
     Indication: Arthritis
  13. VITAMIN C [Concomitant]
     Active Substance: ASCORBIC ACID
     Indication: Prophylaxis urinary tract infection
  14. DORZOLAMIDE [Concomitant]
     Active Substance: DORZOLAMIDE
     Indication: Glaucoma
  15. QUETIAPINE FUMARATE [Concomitant]
     Active Substance: QUETIAPINE FUMARATE
     Indication: Psychiatric disorder prophylaxis
  16. FOLIC ACID [Concomitant]
     Active Substance: FOLIC ACID
     Indication: Mineral supplementation
  17. LATANOPROST [Concomitant]
     Active Substance: LATANOPROST
     Indication: Glaucoma
  18. ATORVASTATIN [Concomitant]
     Active Substance: ATORVASTATIN
     Indication: Anticoagulant therapy
  19. OMEPRAZOLE [Concomitant]
     Active Substance: OMEPRAZOLE
     Indication: Dyspepsia
  20. PROMETHAZINE [Concomitant]
     Active Substance: PROMETHAZINE HYDROCHLORIDE
     Indication: Vomiting
     Dosage: TIME INTERVAL: AS NECESSARY
  21. NORTRIPTYLINE [Concomitant]
     Active Substance: NORTRIPTYLINE
     Indication: Pain prophylaxis
  22. ESTRACE [Concomitant]
     Active Substance: ESTRADIOL
     Indication: Vulvovaginal dryness

REACTIONS (10)
  - Gastritis [Not Recovered/Not Resolved]
  - Fall [Recovered/Resolved]
  - Medical device implantation [Unknown]
  - Abdominal hernia [Not Recovered/Not Resolved]
  - Vomiting [Recovered/Resolved]
  - Gait disturbance [Not Recovered/Not Resolved]
  - Vomiting [Recovered/Resolved]
  - Device loosening [Unknown]
  - Device breakage [Unknown]
  - Spinal operation [Unknown]

NARRATIVE: CASE EVENT DATE: 20210101
